FAERS Safety Report 8293172-2 (Version None)
Quarter: 2012Q2

REPORT INFORMATION
  Report Type: 
  Country: None (occurrence: None)
  Receive Date: 20120417
  Receipt Date: 20110729
  Transmission Date: 20120825
  Serious: No
  Sender: FDA-Public Use
  Company Number: US-ASTRAZENECA-2011SE45580

PATIENT
  Sex: Female

DRUGS (3)
  1. CELEBREX [Concomitant]
  2. NEXIUM [Suspect]
     Route: 048
  3. LIPITOR [Concomitant]

REACTIONS (5)
  - FATIGUE [None]
  - NAUSEA [None]
  - DIVERTICULITIS [None]
  - DIARRHOEA [None]
  - FLATULENCE [None]
